FAERS Safety Report 9862271 (Version 1)
Quarter: 2014Q1

REPORT INFORMATION
  Report Type: Spontaneous
  Country: TW (occurrence: TW)
  Receive Date: 20140203
  Receipt Date: 20140203
  Transmission Date: 20141002
  Serious: Yes (Other)
  Sender: FDA-Public Use
  Company Number: TW-MYLANLABS-2014S1001613

PATIENT
  Age: 62 Year
  Sex: Male

DRUGS (7)
  1. RISPERIDONE [Suspect]
     Dosage: 1 MG/D
     Route: 065
  2. BUPROPION [Interacting]
     Dosage: 150 MG/D, THEN 300 MG/D
     Route: 065
  3. BUPROPION [Interacting]
     Dosage: 300 MG/D
     Route: 065
  4. QUETIAPINE [Suspect]
     Dosage: 100 MG/D, THEN 200 MG/D
     Route: 065
  5. QUETIAPINE [Suspect]
     Dosage: 200 MG/D
     Route: 065
  6. LAMOTRIGINE [Concomitant]
     Dosage: 25 MG/D, THEN 75 MG/D
     Route: 065
  7. LAMOTRIGINE [Concomitant]
     Dosage: 75 MG/D
     Route: 065

REACTIONS (6)
  - Delirium [Recovered/Resolved]
  - Drug interaction [Recovered/Resolved]
  - Dry mouth [Unknown]
  - Dry skin [Unknown]
  - Abdominal discomfort [Unknown]
  - Constipation [Unknown]
